FAERS Safety Report 10074249 (Version 1)
Quarter: 2014Q2

REPORT INFORMATION
  Report Type: Report from Study
  Country: US (occurrence: US)
  Receive Date: 20140411
  Receipt Date: 20140411
  Transmission Date: 20141212
  Serious: No
  Sender: FDA-Public Use
  Company Number: US-BAXTER-2012BAX014792

PATIENT
  Age: 51 Year
  Sex: Female

DRUGS (1)
  1. GAMMAGARD LIQUID [Suspect]
     Indication: PRODUCT USED FOR UNKNOWN INDICATION
     Route: 058
     Dates: start: 20120727, end: 20120727

REACTIONS (2)
  - Flank pain [Recovered/Resolved]
  - Musculoskeletal pain [Recovered/Resolved]
